FAERS Safety Report 21041515 (Version 2)
Quarter: 2022Q3

REPORT INFORMATION
  Report Type: Report from Study
  Country: JP (occurrence: JP)
  Receive Date: 20220705
  Receipt Date: 20220802
  Transmission Date: 20221027
  Serious: Yes (Hospitalization, Other)
  Sender: FDA-Public Use
  Company Number: JP-ONO-2022JP018014

PATIENT
  Age: 58 Year
  Sex: Male
  Weight: 59 kg

DRUGS (31)
  1. ETELCALCETIDE [Suspect]
     Active Substance: ETELCALCETIDE
     Indication: Hyperparathyroidism secondary
     Dosage: 5 MILLIGRAM, Q56H
     Route: 065
     Dates: start: 20220319, end: 20220519
  2. ETELCALCETIDE [Suspect]
     Active Substance: ETELCALCETIDE
     Dosage: 5 MILLIGRAM, Q84H
     Route: 065
     Dates: start: 20220523
  3. ETELCALCETIDE [Suspect]
     Active Substance: ETELCALCETIDE
     Dosage: 7.5 MILLIGRAM, QWK
     Route: 065
     Dates: start: 20220521
  4. EPOETIN ALFA [Concomitant]
     Active Substance: ERYTHROPOIETIN
     Dosage: 2250 IU, QW
     Route: 065
     Dates: start: 20210615, end: 20210803
  5. EPOETIN ALFA [Concomitant]
     Active Substance: ERYTHROPOIETIN
     Dosage: 1500 IU, QW
     Dates: start: 20210807, end: 20220125
  6. EPOETIN ALFA [Concomitant]
     Active Substance: ERYTHROPOIETIN
     Dosage: 2250 IU, QW
     Dates: start: 20220127, end: 20220210
  7. EPOETIN ALFA [Concomitant]
     Active Substance: ERYTHROPOIETIN
     Dosage: 3000 IU, QW
     Dates: start: 20220212, end: 20220306
  8. EPOETIN ALFA [Concomitant]
     Active Substance: ERYTHROPOIETIN
     Dosage: 4500 IU, QW
     Dates: start: 20220310, end: 20220519
  9. EPOETIN ALFA [Concomitant]
     Active Substance: ERYTHROPOIETIN
     Dosage: 6000 IU, QW
     Dates: start: 20220521, end: 20220618
  10. EPOETIN ALFA [Concomitant]
     Active Substance: ERYTHROPOIETIN
     Dosage: 7500 IU, QW
     Dates: start: 20220621
  11. ROCALTROL [Concomitant]
     Active Substance: CALCITRIOL
     Dosage: 0.5 UG, EVERYDAY
     Route: 048
     Dates: start: 20180713, end: 20181225
  12. ROCALTROL [Concomitant]
     Active Substance: CALCITRIOL
     Dosage: 0.5 UG, EVERYDAY
     Dates: start: 20190124, end: 20190306
  13. ROCALTROL [Concomitant]
     Active Substance: CALCITRIOL
     Dosage: 0.25 UG, EVERYDAY
     Dates: start: 20190307, end: 20190529
  14. ROCALTROL [Concomitant]
     Active Substance: CALCITRIOL
     Dosage: 0.5 UG, EVERYDAY
     Dates: start: 20190613, end: 20190807
  15. ROCALTROL [Concomitant]
     Active Substance: CALCITRIOL
     Dosage: 0.5 UG, EVERYDAY
     Dates: start: 20200319, end: 20200819
  16. ROCALTROL [Concomitant]
     Active Substance: CALCITRIOL
     Dosage: 0.5 UG, EVERYDAY
     Dates: start: 20210415, end: 20210623
  17. ROCALTROL [Concomitant]
     Active Substance: CALCITRIOL
     Dosage: 0.5 UG, EVERYDAY
     Dates: start: 20220217, end: 20220620
  18. ROCALTROL [Concomitant]
     Active Substance: CALCITRIOL
     Dosage: 0.25 UG, EVERYDAY
     Dates: start: 20220621
  19. ROCALTROL [Concomitant]
     Active Substance: CALCITRIOL
     Dosage: 0.5 UG, EVERYDAY
     Route: 048
     Dates: start: 20180713, end: 20181225
  20. ROCALTROL [Concomitant]
     Active Substance: CALCITRIOL
     Dosage: 0.5 UG, EVERYDAY
     Dates: start: 20190124, end: 20190306
  21. ROCALTROL [Concomitant]
     Active Substance: CALCITRIOL
     Dosage: 0.25 UG, EVERYDAY
     Dates: start: 20190307, end: 20190529
  22. ROCALTROL [Concomitant]
     Active Substance: CALCITRIOL
     Dosage: 0.5 UG, EVERYDAY
     Dates: start: 20190613, end: 20190807
  23. ROCALTROL [Concomitant]
     Active Substance: CALCITRIOL
     Dosage: 0.5 UG, EVERYDAY
     Dates: start: 20200319, end: 20200819
  24. ROCALTROL [Concomitant]
     Active Substance: CALCITRIOL
     Dosage: 0.5 UG, EVERYDAY
     Dates: start: 20210415, end: 20210623
  25. ROCALTROL [Concomitant]
     Active Substance: CALCITRIOL
     Dosage: 0.5 UG, EVERYDAY
     Dates: start: 20220217, end: 20220620
  26. ROCALTROL [Concomitant]
     Active Substance: CALCITRIOL
     Dosage: 0.25 UG, EVERYDAY
     Dates: start: 20220621
  27. P-tol [Concomitant]
     Dosage: 750 MG, EVERYDAY
     Route: 065
  28. CALCIUM CARBONATE [Concomitant]
     Active Substance: CALCIUM CARBONATE
     Dosage: 3000 MG, EVERYDAY
     Route: 048
  29. BIXALOMER [Concomitant]
     Active Substance: BIXALOMER
     Dosage: 2250 MG, EVERYDAY
     Route: 065
     Dates: end: 20190206
  30. BIXALOMER [Concomitant]
     Active Substance: BIXALOMER
     Dosage: 2250 MG, EVERYDAY
     Dates: start: 20190711, end: 20200916
  31. BIXALOMER [Concomitant]
     Active Substance: BIXALOMER
     Dosage: 3000 MG, EVERYDAY
     Dates: start: 20200917

REACTIONS (2)
  - Shunt occlusion [Recovering/Resolving]
  - Shunt stenosis [Recovered/Resolved]

NARRATIVE: CASE EVENT DATE: 20220616
